FAERS Safety Report 7611112-3 (Version None)
Quarter: 2011Q3

REPORT INFORMATION
  Report Type: 
  Country: None (occurrence: None)
  Receive Date: 20110715
  Receipt Date: 20110704
  Transmission Date: 20111222
  Serious: Yes (Hospitalization, Other)
  Sender: FDA-Public Use
  Company Number: US-PFIZER INC-2011158313

PATIENT
  Age: 80 Year
  Sex: Male

DRUGS (7)
  1. AMIODARONE HCL [Suspect]
     Indication: ATRIAL FIBRILLATION
  2. AMIODARONE HCL [Suspect]
     Indication: VENTRICULAR TACHYCARDIA
     Dosage: UNK
  3. HEPARIN SODIUM [Suspect]
     Indication: PRODUCT USED FOR UNKNOWN INDICATION
     Dosage: UNK
     Route: 065
  4. AMIODARONE HYDROCHLORIDE [Suspect]
     Indication: CARDIAC FAILURE ACUTE
  5. AMIODARONE HCL [Suspect]
     Indication: CARDIAC FAILURE ACUTE
  6. AMIODARONE HYDROCHLORIDE [Suspect]
     Indication: VENTRICULAR TACHYCARDIA
     Dosage: UNK
     Route: 042
  7. AMIODARONE HYDROCHLORIDE [Suspect]
     Indication: ATRIAL FIBRILLATION

REACTIONS (2)
  - HEPARIN-INDUCED THROMBOCYTOPENIA [None]
  - HYPOTHYROIDISM [None]
